FAERS Safety Report 25645508 (Version 1)
Quarter: 2025Q3

REPORT INFORMATION
  Report Type: Report from Study
  Country: AU (occurrence: AU)
  Receive Date: 20250805
  Receipt Date: 20250805
  Transmission Date: 20251021
  Serious: Yes (Other)
  Sender: TAKEDA
  Company Number: AU-TAKEDA-2025TUS067890

PATIENT
  Age: 44 Year
  Sex: Female

DRUGS (9)
  1. HUMAN IMMUNOGLOBULIN G [Suspect]
     Active Substance: HUMAN IMMUNOGLOBULIN G
     Indication: Ulcer
  2. METHOTREXATE [Suspect]
     Active Substance: METHOTREXATE
     Indication: Ulcer
     Dosage: 10 MILLIGRAM, 1/WEEK
  3. ADALIMUMAB [Suspect]
     Active Substance: ADALIMUMAB
     Indication: Ulcer
     Dosage: 40 MILLIGRAM, 1/WEEK
  4. CYCLOSPORINE [Suspect]
     Active Substance: CYCLOSPORINE
     Indication: Ulcer
     Dosage: 3 MILLIGRAM/KILOGRAM, QD
  5. INFLIXIMAB [Suspect]
     Active Substance: INFLIXIMAB
     Indication: Ulcer
  6. METHYLPREDNISOLONE [Suspect]
     Active Substance: METHYLPREDNISOLONE
     Indication: Ulcer
     Dosage: 500 MILLIGRAM, QD
  7. MYCOPHENOLIC ACID [Suspect]
     Active Substance: MYCOPHENOLIC ACID
     Indication: Ulcer
     Dosage: 1.5 MILLIGRAM, Q12H
  8. PREDNISOLONE [Suspect]
     Active Substance: PREDNISOLONE
     Indication: Ulcer
  9. USTEKINUMAB [Suspect]
     Active Substance: USTEKINUMAB
     Indication: Ulcer

REACTIONS (2)
  - Disease progression [Unknown]
  - Drug ineffective [Unknown]
